FAERS Safety Report 9066768 (Version 3)
Quarter: 2013Q4

REPORT INFORMATION
  Report Type: Spontaneous
  Country: US (occurrence: US)
  Receive Date: 20130214
  Receipt Date: 20131113
  Transmission Date: 20140711
  Serious: Yes (Hospitalization)
  Sender: FDA-Public Use
  Company Number: US-GLAXOSMITHKLINE-A1011975A

PATIENT
  Sex: Female

DRUGS (2)
  1. FLOLAN [Suspect]
     Indication: PULMONARY ARTERIAL HYPERTENSION
     Dosage: 71NGKM CONTINUOUS
     Route: 065
     Dates: start: 20020920
  2. LASIX [Concomitant]

REACTIONS (4)
  - Fluid overload [Unknown]
  - Ascites [Unknown]
  - Weight decreased [Unknown]
  - Overdose [Unknown]
